FAERS Safety Report 25335845 (Version 4)
Quarter: 2025Q3

REPORT INFORMATION
  Report Type: Spontaneous
  Country: IL (occurrence: IL)
  Receive Date: 20250520
  Receipt Date: 20250715
  Transmission Date: 20251021
  Serious: Yes (Death, Hospitalization)
  Sender: NOVARTIS
  Company Number: IL-002147023-NVSC2025IL080384

PATIENT
  Sex: Male

DRUGS (1)
  1. ZOLGENSMA [Suspect]
     Active Substance: ONASEMNOGENE ABEPARVOVEC-XIOI
     Indication: Spinal muscular atrophy
     Route: 042
     Dates: start: 202306, end: 202306

REACTIONS (3)
  - Spinal muscular atrophy [Fatal]
  - Hypoxia [Unknown]
  - Lung disorder [Unknown]

NARRATIVE: CASE EVENT DATE: 20240901
